FAERS Safety Report 5215119-5 (Version None)
Quarter: 2007Q1

REPORT INFORMATION
  Report Type: 
  Country: None (occurrence: None)
  Receive Date: 20070122
  Receipt Date: 20070110
  Transmission Date: 20070707
  Serious: Yes (Other)
  Sender: FDA-Public Use
  Company Number: US-PFIZER INC-2007003343

PATIENT
  Sex: Female
  Weight: 63.5 kg

DRUGS (2)
  1. DEPO-MEDROL [Suspect]
     Indication: EAR INFECTION
     Route: 030
     Dates: start: 20060726, end: 20060726
  2. DECADRON [Concomitant]
     Route: 030
     Dates: start: 20060726, end: 20060726

REACTIONS (4)
  - FAT NECROSIS [None]
  - NERVOUS SYSTEM DISORDER [None]
  - PAIN IN EXTREMITY [None]
  - SLEEP DISORDER [None]
